FAERS Safety Report 6438627-8 (Version None)
Quarter: 2009Q4

REPORT INFORMATION
  Report Type: 
  Country: None (occurrence: None)
  Receive Date: 20091110
  Receipt Date: 20091029
  Transmission Date: 20100525
  Serious: Yes (Hospitalization, Other)
  Sender: FDA-Public Use
  Company Number: 2009AP004399

PATIENT
  Age: 26 Year
  Sex: Male
  Weight: 87 kg

DRUGS (10)
  1. CARBAMAZEPINE [Suspect]
     Indication: AGGRESSION
     Dosage: 200 MG;TID;PO
     Route: 048
  2. CARBAMAZEPINE [Suspect]
     Indication: BIPOLAR DISORDER
     Dosage: 200 MG;TID;PO
     Route: 048
  3. CARBAMAZEPINE [Suspect]
     Indication: CONVULSION
     Dosage: 200 MG;TID;PO
     Route: 048
  4. TOPIRAMATE [Concomitant]
  5. OLANZAPINE [Concomitant]
  6. QUETIAPINE [Concomitant]
  7. GUANFACINE HYDROCHLORIDE [Concomitant]
  8. DESMOPRESSIN ACETATE [Concomitant]
  9. VAPROIC ACID [Concomitant]
  10. VALPROIC ACID [Concomitant]

REACTIONS (13)
  - AFFECT LABILITY [None]
  - AGGRESSION [None]
  - AGITATION [None]
  - AMINO ACID METABOLISM DISORDER [None]
  - ANOSOGNOSIA [None]
  - CARNITINE DEFICIENCY [None]
  - COGNITIVE DISORDER [None]
  - DISORIENTATION [None]
  - DRUG LEVEL DECREASED [None]
  - FEAR [None]
  - HYPERAMMONAEMIA [None]
  - INSOMNIA [None]
  - JUDGEMENT IMPAIRED [None]
